FAERS Safety Report 12202380 (Version 3)
Quarter: 2016Q2

REPORT INFORMATION
  Report Type: Report from Study
  Country: AR (occurrence: AR)
  Receive Date: 20160322
  Receipt Date: 20160624
  Transmission Date: 20160815
  Serious: Yes (Hospitalization, Other)
  Sender: FDA-Public Use
  Company Number: PHHY2016AR037890

PATIENT
  Age: 69 Year
  Sex: Male

DRUGS (5)
  1. EXFORGE [Suspect]
     Active Substance: AMLODIPINE BESYLATE\VALSARTAN
     Indication: HYPERTENSION
     Dosage: 1 DF, QD
     Route: 065
  2. EXFORGE [Suspect]
     Active Substance: AMLODIPINE BESYLATE\VALSARTAN
     Dosage: UNK
     Route: 065
     Dates: start: 20160328
  3. FLUCONAZOLE. [Concomitant]
     Active Substance: FLUCONAZOLE
     Indication: ANTIBIOTIC PROPHYLAXIS
     Dosage: 150 MG, UNK
     Route: 065
  4. SULFAMETHOXAZOLE W/TRIMIPRAMINE [Concomitant]
     Indication: ANTIBIOTIC PROPHYLAXIS
     Route: 065
  5. VALACICLOVIR [Concomitant]
     Active Substance: VALACYCLOVIR HYDROCHLORIDE
     Indication: ANTIBIOTIC PROPHYLAXIS
     Dosage: 500 MG, UNK
     Route: 065

REACTIONS (3)
  - Blood pressure decreased [Recovered/Resolved]
  - Chronic myelomonocytic leukaemia [Unknown]
  - Back pain [Unknown]

NARRATIVE: CASE EVENT DATE: 20151110
